FAERS Safety Report 15927753 (Version 3)
Quarter: 2019Q1

REPORT INFORMATION
  Report Type: Spontaneous
  Country: US (occurrence: US)
  Receive Date: 20190206
  Receipt Date: 20190313
  Transmission Date: 20190417
  Serious: Yes (Hospitalization, Disabling)
  Sender: FDA-Public Use
  Company Number: US-JNJFOC-20190135508

PATIENT
  Age: 47 Year
  Sex: Female

DRUGS (1)
  1. INVOKANA [Suspect]
     Active Substance: CANAGLIFLOZIN
     Indication: TYPE 2 DIABETES MELLITUS
     Route: 048
     Dates: start: 201401

REACTIONS (8)
  - Leg amputation [Unknown]
  - Sepsis [Recovering/Resolving]
  - Skin ulcer [Recovered/Resolved]
  - Osteomyelitis [Recovering/Resolving]
  - Infection [Recovering/Resolving]
  - Foot amputation [Unknown]
  - Treatment noncompliance [Unknown]
  - Diabetic ketoacidosis [Recovering/Resolving]

NARRATIVE: CASE EVENT DATE: 20140116
